FAERS Safety Report 20779510 (Version 1)
Quarter: 2022Q2

REPORT INFORMATION
  Report Type: Spontaneous
  Country: KR (occurrence: None)
  Receive Date: 20220503
  Receipt Date: 20220503
  Transmission Date: 20220721
  Serious: Yes (Other)
  Sender: FDA-Public Use
  Company Number: 2022A169684

PATIENT
  Age: 70 Year

DRUGS (1)
  1. IMFINZI [Suspect]
     Active Substance: DURVALUMAB
     Route: 042

REACTIONS (4)
  - Interstitial lung disease [Unknown]
  - Recurrent cancer [Unknown]
  - Performance status decreased [Unknown]
  - Unevaluable event [Unknown]
